FAERS Safety Report 21663924 (Version 1)
Quarter: 2022Q4

REPORT INFORMATION
  Report Type: Spontaneous
  Country: JP (occurrence: JP)
  Receive Date: 20221130
  Receipt Date: 20221130
  Transmission Date: 20230113
  Serious: Yes (Other)
  Sender: FDA-Public Use
  Company Number: JP-AMGEN-JPNSP2022204801

PATIENT

DRUGS (1)
  1. BLINCYTO [Suspect]
     Active Substance: BLINATUMOMAB
     Indication: B precursor type acute leukaemia
     Dosage: UNK
     Route: 040

REACTIONS (10)
  - Myelosuppression [Unknown]
  - Disseminated intravascular coagulation [Unknown]
  - Pathogen resistance [Unknown]
  - Cytokine release syndrome [Unknown]
  - Pyrexia [Unknown]
  - Headache [Unknown]
  - Neutrophil count decreased [Unknown]
  - Anaemia [Unknown]
  - Platelet count decreased [Unknown]
  - Escherichia infection [Unknown]
